FAERS Safety Report 12650018 (Version 2)
Quarter: 2022Q1

REPORT INFORMATION
  Report Type: Report from Study
  Country: US (occurrence: US)
  Receive Date: 20160813
  Receipt Date: 20220104
  Transmission Date: 20220423
  Serious: Yes (Other)
  Sender: FDA-Public Use
  Company Number: US-AMGEN-USASP2016101325

PATIENT
  Age: 76 Year
  Sex: Female

DRUGS (2)
  1. ENBREL [Suspect]
     Active Substance: ETANERCEPT
     Indication: Psoriasis
     Dosage: UNK UNK, 2 TIMES/WK
     Route: 065
  2. ENBREL [Suspect]
     Active Substance: ETANERCEPT
     Dosage: UNK
     Route: 065

REACTIONS (9)
  - Knee arthroplasty [Unknown]
  - Renal surgery [Unknown]
  - Knee operation [Unknown]
  - Injection site pain [Unknown]
  - Rash macular [Unknown]
  - Dry skin [Unknown]
  - Exfoliative rash [Unknown]
  - Fatigue [Unknown]
  - Arthropathy [Unknown]
